FAERS Safety Report 15813551 (Version 1)
Quarter: 2019Q1

REPORT INFORMATION
  Report Type: Spontaneous
  Country: US (occurrence: US)
  Receive Date: 20190111
  Receipt Date: 20190111
  Transmission Date: 20190417
  Serious: No
  Sender: FDA-Public Use
  Company Number: US-ALLERGAN-1839410US

PATIENT
  Sex: Female

DRUGS (2)
  1. ACZONE [Suspect]
     Active Substance: DAPSONE
     Dosage: UNK
     Route: 061
     Dates: start: 2017
  2. ACZONE [Suspect]
     Active Substance: DAPSONE
     Indication: ACNE
     Dosage: GLOB ON FINGER AND PUT ON PROBLEM
     Route: 061
     Dates: start: 2017, end: 2018

REACTIONS (2)
  - Expired product administered [Unknown]
  - Drug ineffective [Unknown]
